FAERS Safety Report 6140392-9 (Version None)
Quarter: 2009Q1

REPORT INFORMATION
  Report Type: 
  Country: None (occurrence: None)
  Receive Date: 20090331
  Receipt Date: 20090319
  Transmission Date: 20090719
  Serious: Yes (Other)
  Sender: FDA-Public Use
  Company Number: 233061K09USA

PATIENT
  Age: 49 Year
  Sex: Female
  Weight: 68 kg

DRUGS (10)
  1. REBIF [Suspect]
     Indication: MULTIPLE SCLEROSIS
     Dosage: 44 MCG, 3 IN 1 WEEKS, SUBCUTANEOUS
     Route: 058
     Dates: start: 20041012
  2. DIOVAN [Concomitant]
  3. ZETIA [Concomitant]
  4. SIMVASTATIN [Concomitant]
  5. FIBER (ALL OTHER THERAPEUTIC PRODUCTS) [Concomitant]
  6. ADVAIR HFA [Concomitant]
  7. FLONASE [Concomitant]
  8. VENTOLIN [Concomitant]
  9. TEGRETOL [Concomitant]
  10. LAMOTRIGINE [Concomitant]

REACTIONS (7)
  - ARTHRALGIA [None]
  - EXOSTOSIS [None]
  - HEPATIC ENZYME INCREASED [None]
  - HEPATIC STEATOSIS [None]
  - JOINT STIFFNESS [None]
  - LIVER DISORDER [None]
  - SCAR [None]
